FAERS Safety Report 8822331 (Version 3)
Quarter: 2013Q1

REPORT INFORMATION
  Report Type: Spontaneous
  Country: US (occurrence: US)
  Receive Date: 20121003
  Receipt Date: 20130102
  Transmission Date: 20140127
  Serious: Yes (Death, Hospitalization)
  Sender: FDA-Public Use
  Company Number: US-009507513-1209USA010647

PATIENT
  Age: 70 Year
  Sex: Male

DRUGS (2)
  1. INTEGRILIN [Suspect]
     Indication: CHEST PAIN
  2. ASPIRIN [Concomitant]

REACTIONS (4)
  - Death [Fatal]
  - Feeling abnormal [Fatal]
  - Platelet count decreased [Fatal]
  - Chest pain [Fatal]
